FAERS Safety Report 12765251 (Version 2)
Quarter: 2016Q4

REPORT INFORMATION
  Report Type: Spontaneous
  Country: BR (occurrence: BR)
  Receive Date: 20160921
  Receipt Date: 20161104
  Transmission Date: 20170207
  Serious: Yes (Hospitalization, Other)
  Sender: FDA-Public Use
  Company Number: BR-AMGEN-BRASP2016124345

PATIENT
  Age: 30 Year
  Sex: Male
  Weight: 98.8 kg

DRUGS (10)
  1. NEULASTIM [Suspect]
     Active Substance: PEGFILGRASTIM
     Dosage: 6 MG, ONE TIME DOSE
     Route: 065
     Dates: start: 20161021, end: 20161021
  2. NEULASTIM [Suspect]
     Active Substance: PEGFILGRASTIM
     Indication: PROPHYLAXIS
     Dosage: 6 MG, UNK
     Route: 065
     Dates: start: 20160806, end: 20160903
  3. NEUPOGEN [Suspect]
     Active Substance: FILGRASTIM
     Indication: NEUTROPHIL COUNT ABNORMAL
     Dosage: UNK
     Route: 065
     Dates: start: 201609, end: 20160910
  4. NEUPOGEN [Suspect]
     Active Substance: FILGRASTIM
     Indication: FEBRILE NEUTROPENIA
     Dosage: FOR 7 DAYS
     Route: 065
     Dates: start: 201610
  5. IFOSFAMIDE. [Concomitant]
     Active Substance: IFOSFAMIDE
     Indication: TESTICULAR NEOPLASM
     Dosage: 3996 MG, UNK
     Dates: start: 20160826
  6. IFOSFAMIDE. [Concomitant]
     Active Substance: IFOSFAMIDE
     Dosage: 3996 MG, UNK
     Dates: start: 20160829, end: 20160902
  7. EPIRUBICIN [Concomitant]
     Active Substance: EPIRUBICIN
     Indication: TESTICULAR NEOPLASM
     Dosage: 133 MG, UNK
     Dates: start: 20160826
  8. EPIRUBICIN [Concomitant]
     Active Substance: EPIRUBICIN
     Dosage: 133 MG, UNK
     Dates: start: 20160830
  9. MESNA. [Concomitant]
     Active Substance: MESNA
     Indication: TESTICULAR NEOPLASM
     Dosage: 1998 MG, UNK
     Dates: start: 20160826
  10. EPIRUBICIN [Concomitant]
     Active Substance: EPIRUBICIN
     Dosage: 133 MG, UNK
     Dates: start: 20160829

REACTIONS (5)
  - Neutrophil count abnormal [Recovered/Resolved]
  - Neutropenia [Unknown]
  - White blood cell count abnormal [Unknown]
  - Treatment failure [Unknown]
  - Febrile neutropenia [Recovered/Resolved]

NARRATIVE: CASE EVENT DATE: 2016
